FAERS Safety Report 11743256 (Version 1)
Quarter: 2015Q4

REPORT INFORMATION
  Report Type: Spontaneous
  Country: US (occurrence: US)
  Receive Date: 20151116
  Receipt Date: 20151116
  Transmission Date: 20160304
  Serious: Yes (Death, Hospitalization, Other)
  Sender: FDA-Public Use
  Company Number: US-PFIZER INC-2015384457

PATIENT
  Age: 20 Year
  Sex: Male

DRUGS (1)
  1. ZIPRASIDONE HCL [Suspect]
     Active Substance: ZIPRASIDONE HYDROCHLORIDE
     Indication: AUTISM
     Dosage: UNK

REACTIONS (3)
  - Hyperosmolar hyperglycaemic state [Unknown]
  - Neuroleptic malignant syndrome [Fatal]
  - Hyperthermia [Fatal]
